FAERS Safety Report 5492656-X (Version None)
Quarter: 2007Q4

REPORT INFORMATION
  Report Type: 
  Country: None (occurrence: None)
  Receive Date: 20071022
  Receipt Date: 20071010
  Transmission Date: 20080405
  Serious: Yes (Other)
  Sender: FDA-Public Use
  Company Number: GB-PFIZER INC-2007085607

PATIENT
  Sex: Female

DRUGS (2)
  1. GABAPENTIN [Suspect]
  2. KEPPRA [Concomitant]

REACTIONS (1)
  - OSTEOPENIA [None]
